FAERS Safety Report 21196717 (Version 1)
Quarter: 2022Q3

REPORT INFORMATION
  Report Type: Spontaneous
  Country: US (occurrence: None)
  Receive Date: 20220810
  Receipt Date: 20220810
  Transmission Date: 20221026
  Serious: Yes (Death)
  Sender: FDA-Public Use
  Company Number: None

PATIENT
  Sex: Male

DRUGS (14)
  1. IMATINIB [Suspect]
     Active Substance: IMATINIB
     Indication: Gastrointestinal stromal tumour
     Dosage: 400 MG ORAL??TAKE  1 TABLET BY MOUTH EVERY DAY?
     Route: 048
     Dates: start: 202208, end: 202208
  2. ALLEGRA [Concomitant]
     Active Substance: FEXOFENADINE HYDROCHLORIDE
  3. AMLODIPINE [Concomitant]
     Active Substance: AMLODIPINE BESYLATE
  4. ASPIRIN [Concomitant]
     Active Substance: ASPIRIN
  5. CRESTOR [Concomitant]
     Active Substance: ROSUVASTATIN CALCIUM
  6. FLOMAX [Concomitant]
     Active Substance: TAMSULOSIN HYDROCHLORIDE
  7. GLEEVEC [Concomitant]
     Active Substance: IMATINIB MESYLATE
  8. LISINOPRIL [Concomitant]
     Active Substance: LISINOPRIL
  9. MULTI VIT TAB MENS [Concomitant]
  10. NASONEX [Concomitant]
     Active Substance: MOMETASONE FUROATE
  11. PREVACID [Concomitant]
     Active Substance: LANSOPRAZOLE
  12. PROCRIT [Concomitant]
     Active Substance: ERYTHROPOIETIN
  13. TRIAMTERENE [Concomitant]
     Active Substance: TRIAMTERENE
  14. TYLENOL ARTH [Concomitant]

REACTIONS (1)
  - Death [None]

NARRATIVE: CASE EVENT DATE: 20220801
